FAERS Safety Report 16106192 (Version 1)
Quarter: 2019Q1

REPORT INFORMATION
  Report Type: Spontaneous
  Country: GB (occurrence: GB)
  Receive Date: 20190322
  Receipt Date: 20190322
  Transmission Date: 20190418
  Serious: Yes (Hospitalization, Disabling, Other)
  Sender: FDA-Public Use
  Company Number: GB-TEVA-2019-GB-1026834

PATIENT
  Age: 88 Year
  Sex: Male

DRUGS (8)
  1. ATORVASTATIN [Suspect]
     Active Substance: ATORVASTATIN
     Route: 065
  2. CLARITHROMYCIN. [Interacting]
     Active Substance: CLARITHROMYCIN
     Indication: CELLULITIS
     Dosage: 1000 MILLIGRAM DAILY;
     Route: 048
     Dates: start: 20190105, end: 20190118
  3. PENICILLIN NOS [Concomitant]
     Active Substance: PENICILLIN
     Indication: CELLULITIS
  4. BISOPROLOL [Concomitant]
     Active Substance: BISOPROLOL
  5. LEVOTHYROXINE. [Concomitant]
     Active Substance: LEVOTHYROXINE
  6. RAMIPRIL. [Concomitant]
     Active Substance: RAMIPRIL
  7. AMIODARONE [Interacting]
     Active Substance: AMIODARONE
     Route: 065
  8. BUMETANIDE. [Interacting]
     Active Substance: BUMETANIDE
     Route: 065

REACTIONS (6)
  - Asthenia [Not Recovered/Not Resolved]
  - Weight bearing difficulty [Recovered/Resolved]
  - Confusional state [Recovered/Resolved]
  - Fluid retention [Unknown]
  - Muscular weakness [Recovered/Resolved]
  - Labelled drug-drug interaction medication error [Unknown]

NARRATIVE: CASE EVENT DATE: 201901
